FAERS Safety Report 10062895 (Version 1)
Quarter: 2014Q2

REPORT INFORMATION
  Report Type: Report from Study
  Country: US (occurrence: US)
  Receive Date: 20140407
  Receipt Date: 20140407
  Transmission Date: 20141212
  Serious: Yes (Death)
  Sender: FDA-Public Use
  Company Number: US-ABBVIE-14P-163-1220481-00

PATIENT
  Sex: Male

DRUGS (1)
  1. HUMIRA [Suspect]
     Indication: CROHN^S DISEASE
     Dosage: MORE THAN A YEAR, POSSIBLY
     Dates: end: 201305

REACTIONS (3)
  - Cardio-respiratory arrest [Fatal]
  - Sepsis [Fatal]
  - Abdominal abscess [Fatal]
